FAERS Safety Report 25115939 (Version 1)
Quarter: 2025Q1

REPORT INFORMATION
  Report Type: Other
  Country: CA (occurrence: CA)
  Receive Date: 20250325
  Receipt Date: 20250325
  Transmission Date: 20250409
  Serious: Yes (Life-Threatening, Hospitalization, Other)
  Sender: LUPIN
  Company Number: CA-LUPIN PHARMACEUTICALS INC.-2025-02490

PATIENT
  Age: 7 Month
  Sex: Female

DRUGS (13)
  1. PROPRANOLOL [Suspect]
     Active Substance: PROPRANOLOL HYDROCHLORIDE
     Indication: Lymphangioma
     Dosage: 1 MILLIGRAM/KILOGRAM, QD
  2. BLEOMYCIN [Suspect]
     Active Substance: BLEOMYCIN SULFATE
     Indication: Pleural effusion
     Route: 065
  3. DOXYCYCLINE [Suspect]
     Active Substance: DOXYCYCLINE
     Indication: Pleural effusion
     Route: 065
  4. INTERFERON [Suspect]
     Active Substance: INTERFERON
     Indication: Lymphangioma
  5. OCTREOTIDE [Suspect]
     Active Substance: OCTREOTIDE
     Indication: Pleural effusion
     Route: 065
  6. PREDNISONE [Suspect]
     Active Substance: PREDNISONE
     Indication: Lymphangioma
  7. PREDNISONE [Suspect]
     Active Substance: PREDNISONE
     Dosage: 1 MILLIGRAM/KILOGRAM, QD
  8. SIROLIMUS [Suspect]
     Active Substance: SIROLIMUS
     Indication: Lymphangioma
     Dosage: 2 MG/M2, QD (5 DAYS)
  9. SIROLIMUS [Suspect]
     Active Substance: SIROLIMUS
     Dosage: 0.8 MG/M2, QD (5 DAYS)
  10. SIROLIMUS [Suspect]
     Active Substance: SIROLIMUS
     Dosage: 1.5 MG/M2, QD (5 DAYS)
  11. SIROLIMUS [Suspect]
     Active Substance: SIROLIMUS
  12. TRAMETINIB [Suspect]
     Active Substance: TRAMETINIB
     Indication: Lymphangioma
     Dosage: 0.025 MILLIGRAM/KILOGRAM, QD
     Route: 065
  13. VINCRISTINE [Suspect]
     Active Substance: VINCRISTINE
     Indication: Lymphangioma

REACTIONS (13)
  - Adrenal suppression [Recovered/Resolved]
  - Cataract subcapsular [Recovered/Resolved]
  - Cushingoid [Recovered/Resolved]
  - Cytomegalovirus infection [Recovered/Resolved]
  - Glomerulosclerosis [Recovered/Resolved]
  - Hypertension [Recovered/Resolved]
  - Infection [Recovered/Resolved]
  - Neuropathy peripheral [Recovered/Resolved]
  - Osteoporosis [Recovered/Resolved]
  - Proteinuria [Recovered/Resolved]
  - Pulmonary toxicity [Recovered/Resolved]
  - Renal disorder [Recovered/Resolved]
  - Drug ineffective [Unknown]
